FAERS Safety Report 8541995-4 (Version None)
Quarter: 2012Q3

REPORT INFORMATION
  Report Type: 
  Country: None (occurrence: None)
  Receive Date: 20120726
  Receipt Date: 20110930
  Transmission Date: 20120928
  Serious: No
  Sender: FDA-Public Use
  Company Number: US-ASTRAZENECA-2011SE58762

PATIENT
  Age: 32 Year
  Sex: Male
  Weight: 93 kg

DRUGS (5)
  1. ASPIRIN [Concomitant]
     Dosage: AS NEEDED
  2. RESTRIL [Concomitant]
  3. SEROQUEL [Suspect]
     Indication: POST-TRAUMATIC STRESS DISORDER
     Dosage: 25 MG, 2-3 TIMES DAILY
     Route: 048
     Dates: start: 20110701
  4. CLONIPINE [Concomitant]
     Dosage: DAILY
  5. SUBOXONE [Concomitant]
     Dosage: DAILY

REACTIONS (3)
  - OFF LABEL USE [None]
  - NIGHTMARE [None]
  - THERAPEUTIC RESPONSE UNEXPECTED [None]
